FAERS Safety Report 6147845-8 (Version None)
Quarter: 2009Q2

REPORT INFORMATION
  Report Type: 
  Country: None (occurrence: None)
  Receive Date: 20090408
  Receipt Date: 20090403
  Transmission Date: 20091009
  Serious: No
  Sender: FDA-Public Use
  Company Number: DK-ASTRAZENECA-2009SE01373

PATIENT

DRUGS (1)
  1. SEROQUEL [Suspect]
     Indication: SCHIZOPHRENIA

REACTIONS (1)
  - WHITE BLOOD CELL COUNT DECREASED [None]
